FAERS Safety Report 8327986-7 (Version None)
Quarter: 2012Q2

REPORT INFORMATION
  Report Type: 
  Country: None (occurrence: None)
  Receive Date: 20120502
  Receipt Date: 20120424
  Transmission Date: 20120825
  Serious: Yes (Hospitalization, Other)
  Sender: FDA-Public Use
  Company Number: US-BAYER-2011-105959

PATIENT
  Age: 27 Year
  Sex: Female
  Weight: 58.957 kg

DRUGS (3)
  1. MULTI-VITAMINS [Concomitant]
  2. YAZ [Suspect]
     Indication: CONTRACEPTION
     Dosage: UNK
     Dates: start: 20080228, end: 20080301
  3. YAZ [Suspect]
     Dosage: UNK
     Dates: start: 20080812, end: 20090317

REACTIONS (10)
  - PAIN [None]
  - EMOTIONAL DISTRESS [None]
  - VISION BLURRED [None]
  - DIPLOPIA [None]
  - BALANCE DISORDER [None]
  - ANXIETY [None]
  - CEREBROVASCULAR ACCIDENT [None]
  - OPTIC NERVE INJURY [None]
  - GENERAL PHYSICAL HEALTH DETERIORATION [None]
  - VISUAL IMPAIRMENT [None]
